FAERS Safety Report 6439477-9 (Version None)
Quarter: 2009Q4

REPORT INFORMATION
  Report Type: 
  Country: None (occurrence: None)
  Receive Date: 20091113
  Receipt Date: 20091104
  Transmission Date: 20100525
  Serious: Yes (Other)
  Sender: FDA-Public Use
  Company Number: CA-JNJCH-2009029364

PATIENT
  Sex: Female

DRUGS (1)
  1. LISTERINE WHITENING DISOLVING STRIPS [Suspect]
     Indication: DRUG USE FOR UNKNOWN INDICATION
     Dosage: TEXT:UNSPECIFIED
     Route: 048

REACTIONS (4)
  - APPLICATION SITE BURN [None]
  - EXPIRED DRUG ADMINISTERED [None]
  - LIP SWELLING [None]
  - PRODUCT QUALITY ISSUE [None]
